FAERS Safety Report 10649060 (Version 1)
Quarter: 2014Q4

REPORT INFORMATION
  Report Type: Spontaneous
  Country: US (occurrence: None)
  Receive Date: 20141205
  Receipt Date: 20141205
  Transmission Date: 20150529
  Serious: Yes (Disabling)
  Sender: FDA-Public Use
  Company Number: USA-2014101084

PATIENT
  Age: 61 Year
  Sex: Female
  Weight: 93.35 kg

DRUGS (15)
  1. TRAZODONE HCL (TRAZODONE HYDROCHLORIDE) [Concomitant]
  2. SIMVASTATIN(SIMVASTATIN) [Concomitant]
     Active Substance: SIMVASTATIN
  3. BABY ASPIRIN(ACETYLSALICYLIC ACID)(CHEWABLE TABLET) [Concomitant]
  4. FLEXERIL(CYCLOBENZAPRINE HYDROCHLORIDE) [Concomitant]
  5. LEVOTHYROXINE SODIUM(LEVOTHYROXINE SODIUM) [Concomitant]
  6. MAGNESIUM(MAGNESIUM) [Concomitant]
  7. PROTONIX(PANTOPRAZOLE SODIUM SESQUIHYDRATE)(ENTERIC-COATED TABLET) [Concomitant]
  8. DEXAMETHASONE. [Concomitant]
     Active Substance: DEXAMETHASONE
  9. PHENERGAN(PROMETHAZINE) [Concomitant]
  10. POMALYST [Suspect]
     Active Substance: POMALIDOMIDE
     Indication: PLASMA CELL MYELOMA
     Dosage: 4 MG, 21 IN 21 D, PO
     Route: 048
     Dates: start: 20140731, end: 20140828
  11. CLONAZEPAM(CLONAZEPAM) [Concomitant]
  12. LASIX(FUROSEMIDE) [Concomitant]
  13. LORTAB(PARACETAMOL, HYDROCODONE BITARTRATE) [Concomitant]
  14. RANITIDINE HCL (RANITIDINE HYDROCHLORIDE)(ENTERIC-COATED TABLET) [Concomitant]
  15. REQUIP(ROPINIROLE HYDROCHLORIDE) [Concomitant]

REACTIONS (1)
  - Drug ineffective [None]

NARRATIVE: CASE EVENT DATE: 20140731
